FAERS Safety Report 5720862-5 (Version None)
Quarter: 2008Q2

REPORT INFORMATION
  Report Type: 
  Country: None (occurrence: None)
  Receive Date: 20080429
  Receipt Date: 20071127
  Transmission Date: 20081010
  Serious: No
  Sender: FDA-Public Use
  Company Number: A0696841A

PATIENT
  Age: 67 Year
  Sex: Female

DRUGS (2)
  1. SEREVENT [Suspect]
     Indication: DRUG USE FOR UNKNOWN INDICATION
     Route: 065
     Dates: end: 20070101
  2. QVAR 40 [Suspect]
     Indication: DRUG USE FOR UNKNOWN INDICATION
     Dosage: 40MCG PER DAY
     Route: 065
     Dates: start: 20030401, end: 20070101

REACTIONS (2)
  - OESOPHAGEAL ULCER [None]
  - ORAL CANDIDIASIS [None]
